FAERS Safety Report 7552607-0 (Version None)
Quarter: 2011Q2

REPORT INFORMATION
  Report Type: 
  Country: None (occurrence: None)
  Receive Date: 20110616
  Receipt Date: 20110406
  Transmission Date: 20111010
  Serious: No
  Sender: FDA-Public Use
  Company Number: US-MYLANLABS-2011S1007434

PATIENT
  Age: 59 Year
  Sex: Female

DRUGS (2)
  1. BENADRYL [Concomitant]
  2. TRAZODONE HCL [Suspect]
     Indication: INSOMNIA
     Route: 048
     Dates: start: 20110405, end: 20110405

REACTIONS (2)
  - FEELING ABNORMAL [None]
  - PALPITATIONS [None]
